FAERS Safety Report 8251625-7 (Version None)
Quarter: 2012Q2

REPORT INFORMATION
  Report Type: 
  Country: None (occurrence: None)
  Receive Date: 20120402
  Receipt Date: 20120319
  Transmission Date: 20120825
  Serious: Yes (Other)
  Sender: FDA-Public Use
  Company Number: FR-ELI_LILLY_AND_COMPANY-FR201203006443

PATIENT
  Age: 27 Year
  Sex: Male

DRUGS (1)
  1. UMATROPE [Suspect]
     Indication: DWARFISM
     Dosage: UNK UNK, UNKNOWN
     Route: 058

REACTIONS (5)
  - AGEUSIA [None]
  - CRANIOPHARYNGIOMA [None]
  - FATIGUE [None]
  - ANOSMIA [None]
  - MACULOPATHY [None]
